FAERS Safety Report 7185061-1 (Version None)
Quarter: 2010Q4

REPORT INFORMATION
  Report Type: 
  Country: None (occurrence: None)
  Receive Date: 20101222
  Receipt Date: 20100528
  Transmission Date: 20110411
  Serious: No
  Sender: FDA-Public Use
  Company Number: US-AMGEN-KDL415190

PATIENT

DRUGS (19)
  1. ENBREL [Suspect]
     Indication: PRODUCT USED FOR UNKNOWN INDICATION
     Dosage: 50 MG, QWK
     Route: 058
  2. DULOXETIME HYDROCHLORIDE [Concomitant]
     Dosage: 20 MG, UNK
  3. PANTOPRAZOLE [Concomitant]
     Dosage: 20 MG, UNK
  4. CELECOXIB [Concomitant]
     Dosage: 50 MG, UNK
  5. CALCIUM FOLINATE [Concomitant]
     Dosage: 10 MG, UNK
  6. METHOTREXATE [Concomitant]
     Dosage: 2.5 MG, UNK
  7. PREDNISONE [Concomitant]
     Dosage: 1 MG, UNK
  8. PREGABALIN [Concomitant]
     Dosage: 150 MG, UNK
  9. FLUVASTATIN SODIUM [Concomitant]
     Dosage: 20 MG, UNK
  10. ZOLEDRONIC ACID [Concomitant]
     Dosage: UNK UNK, UNK
  11. ALBUTEROL INHALER [Concomitant]
  12. LEFLUNOMIDE [Concomitant]
     Dosage: 10 MG, UNK
  13. GEMFIBROZIL [Concomitant]
     Dosage: 600 MG, UNK
  14. METFORMIN [Concomitant]
     Dosage: 500 MG, UNK
  15. HYDROCHLOROTHIAZIDE [Concomitant]
     Dosage: 200 MG, UNK
  16. FOLIC ACID [Concomitant]
     Dosage: 1 MG, UNK
  17. SULFASALAZINE [Concomitant]
     Dosage: 500 MG, UNK
  18. OXYCODONE HYDROCHLORIDE [Concomitant]
     Dosage: 30 MG, UNK
  19. EXENATIDE [Concomitant]
     Dosage: 5 A?G, UNK

REACTIONS (1)
  - ABDOMINAL PAIN [None]
